FAERS Safety Report 5015678-1 (Version None)
Quarter: 2006Q2

REPORT INFORMATION
  Report Type: 
  Country: None (occurrence: None)
  Receive Date: 20060601
  Receipt Date: 20060525
  Transmission Date: 20061013
  Serious: Yes (Other)
  Sender: FDA-Public Use
  Company Number: GB-GLAXOSMITHKLINE-B0425184A

PATIENT
  Age: 72 Year
  Sex: Male

DRUGS (6)
  1. ROSIGLITAZONE [Suspect]
     Dosage: 4MG UNKNOWN
     Route: 048
     Dates: start: 20060424, end: 20060426
  2. SIMVASTATIN [Concomitant]
     Dosage: 10MG PER DAY
     Route: 048
  3. METFORMIN [Concomitant]
     Dosage: 1850MG PER DAY
     Route: 048
  4. GLICLAZIDE [Concomitant]
     Dosage: 160MG PER DAY
     Route: 048
  5. NAFTIDROFURYL OXALATE [Concomitant]
     Dosage: 300MG PER DAY
     Route: 048
  6. RIVASTIGMINE [Concomitant]
     Route: 048

REACTIONS (4)
  - CONDITION AGGRAVATED [None]
  - DEPRESSED LEVEL OF CONSCIOUSNESS [None]
  - DRUG INTERACTION [None]
  - LETHARGY [None]
